FAERS Safety Report 4462933-X (Version None)
Quarter: 2004Q3

REPORT INFORMATION
  Report Type: 
  Country: None (occurrence: None)
  Receive Date: 20040930
  Receipt Date: 20040810
  Transmission Date: 20050211
  Serious: Yes (Hospitalization)
  Sender: FDA-Public Use
  Company Number: US-BRISTOL-MYERS SQUIBB COMPANY-12666467

PATIENT
  Age: 54 Year
  Sex: Female

DRUGS (2)
  1. CETUXIMAB [Suspect]
     Indication: COLORECTAL CANCER METASTATIC
     Dosage: INITIAL TX DATE: 30-JAN-04. PT HAD REC'D 8 COURSES PRIOR TO EVENT.
     Route: 042
     Dates: start: 20040708, end: 20040708
  2. IRINOTECAN [Suspect]
     Indication: COLORECTAL CANCER METASTATIC
     Dosage: INITIAL TX DATE: 30-JAN-04. PT HAD REC'D 8 COURSES PRIOR TO EVENT.
     Route: 042
     Dates: start: 20040624, end: 20040624

REACTIONS (1)
  - SMALL INTESTINAL OBSTRUCTION [None]
